FAERS Safety Report 7930129-2 (Version None)
Quarter: 2011Q4

REPORT INFORMATION
  Report Type: 
  Country: None (occurrence: None)
  Receive Date: 20111108
  Receipt Date: 20110412
  Transmission Date: 20120403
  Serious: Yes (Other)
  Sender: FDA-Public Use
  Company Number: PHHY2011US31548

PATIENT
  Age: 23 Year
  Sex: Female

DRUGS (2)
  1. CHEMOTHERAPEUTICS NOS (NO INGREDIENT/SUBSTANCES) [Concomitant]
  2. ZOMETA [Suspect]
     Indication: METASTASES TO BONE
     Dosage: 4 M, EVERY 4 WEEKS, INTRAVENOUS
     Route: 042

REACTIONS (2)
  - NEOPLASM MALIGNANT [None]
  - PAIN [None]
